FAERS Safety Report 9621352 (Version 2)
Quarter: 2013Q4

REPORT INFORMATION
  Report Type: Spontaneous
  Country: BR (occurrence: BR)
  Receive Date: 20131015
  Receipt Date: 20131031
  Transmission Date: 20140711
  Serious: Yes (Other)
  Sender: FDA-Public Use
  Company Number: BR-JNJFOC-20131007948

PATIENT
  Sex: Female

DRUGS (2)
  1. ULTRACET [Suspect]
     Indication: PRODUCT USED FOR UNKNOWN INDICATION
     Dosage: 37.5/325MG, EVERY 8 HOURS FOR 2 DAYS
     Route: 048
  2. XEFO [Suspect]
     Indication: PRODUCT USED FOR UNKNOWN INDICATION
     Route: 065

REACTIONS (2)
  - Nervous system disorder [Unknown]
  - Blood pressure decreased [Unknown]
